FAERS Safety Report 15371315 (Version 1)
Quarter: 2018Q3

REPORT INFORMATION
  Report Type: Spontaneous
  Country: DE (occurrence: DE)
  Receive Date: 20180911
  Receipt Date: 20180911
  Transmission Date: 20181010
  Serious: Yes (Death, Hospitalization)
  Sender: FDA-Public Use
  Company Number: DE-PFIZER INC-2018365374

PATIENT
  Age: 71 Year
  Sex: Male

DRUGS (1)
  1. MORPHINE SULFATE. [Suspect]
     Active Substance: MORPHINE SULFATE
     Indication: PAIN
     Dosage: 40 MG, DAILY [STRENGTH 10 MG + 30 MG]
     Route: 065

REACTIONS (10)
  - Intestinal haemorrhage [Unknown]
  - Drug ineffective [Unknown]
  - Vomiting [Unknown]
  - Hyperhidrosis [Unknown]
  - Death [Fatal]
  - Hypoaesthesia [Unknown]
  - Tooth loss [Unknown]
  - Dry mouth [Unknown]
  - Nausea [Unknown]
  - Constipation [Unknown]

NARRATIVE: CASE EVENT DATE: 20180803
